FAERS Safety Report 4954157-4 (Version None)
Quarter: 2006Q1

REPORT INFORMATION
  Report Type: 
  Country: None (occurrence: None)
  Receive Date: 20060327
  Receipt Date: 20060301
  Transmission Date: 20060701
  Serious: Yes (Other)
  Sender: FDA-Public Use
  Company Number: ES-AVENTIS-200611872GDDC

PATIENT
  Age: 6 Year
  Sex: Female
  Weight: 24 kg

DRUGS (1)
  1. DESMOPRESSIN ACETATE [Suspect]
     Route: 048
     Dates: start: 20051024, end: 20051229

REACTIONS (1)
  - PRECOCIOUS PUBERTY [None]
